FAERS Safety Report 19737704 (Version 1)
Quarter: 2021Q3

REPORT INFORMATION
  Report Type: Spontaneous
  Country: US (occurrence: US)
  Receive Date: 20210823
  Receipt Date: 20210823
  Transmission Date: 20211014
  Serious: No
  Sender: FDA-Public Use
  Company Number: US-ARBOR PHARMACEUTICALS, LLC-US-2021ARB000606

PATIENT
  Sex: Female

DRUGS (4)
  1. TRIPTODUR [Suspect]
     Active Substance: TRIPTORELIN
     Dosage: UNK, SINGLE
     Route: 030
     Dates: start: 20210616, end: 20210616
  2. TRIPTODUR [Suspect]
     Active Substance: TRIPTORELIN
  3. TRIPTODUR [Suspect]
     Active Substance: TRIPTORELIN
     Indication: PRODUCT USED FOR UNKNOWN INDICATION
     Dosage: UNK, SINGLE
     Route: 030
     Dates: start: 20210104, end: 20210104
  4. TRIPTODUR [Suspect]
     Active Substance: TRIPTORELIN

REACTIONS (7)
  - Eczema [Not Recovered/Not Resolved]
  - Pruritus [Not Recovered/Not Resolved]
  - Skin injury [Not Recovered/Not Resolved]
  - Mood altered [Unknown]
  - Mood swings [Unknown]
  - Attention-seeking behaviour [Unknown]
  - Crying [Unknown]

NARRATIVE: CASE EVENT DATE: 2021
